FAERS Safety Report 5670976-3 (Version None)
Quarter: 2008Q1

REPORT INFORMATION
  Report Type: 
  Country: None (occurrence: None)
  Receive Date: 20080318
  Receipt Date: 20080307
  Transmission Date: 20080703
  Serious: Yes (Death, Hospitalization)
  Sender: FDA-Public Use
  Company Number: US-ROCHE-507348

PATIENT
  Age: 53 Year
  Sex: Female
  Weight: 58 kg

DRUGS (32)
  1. PEG-INTERFERON ALFA 2A (RO 25-8310) [Suspect]
     Indication: HEPATITIS C
     Route: 058
     Dates: start: 20061024
  2. PEG-INTERFERON ALFA 2A (RO 25-8310) [Suspect]
     Route: 058
     Dates: start: 20060815, end: 20060831
  3. RIBAVIRIN [Suspect]
     Indication: HEPATITIS C
     Route: 048
     Dates: start: 20060815, end: 20060904
  4. VX-950 [Suspect]
     Indication: HEPATITIS C
     Route: 048
     Dates: start: 20060815, end: 20060905
  5. RIBAVIRIN [Concomitant]
     Route: 048
     Dates: start: 20061024
  6. SINGULAIR [Concomitant]
     Indication: ASTHMA
     Route: 048
     Dates: start: 20050101
  7. ALBUTEROL [Concomitant]
     Indication: ASTHMA
     Route: 055
     Dates: start: 20010101
  8. NASACORT [Concomitant]
     Indication: ASTHMA
     Route: 055
     Dates: start: 20010101
  9. ASTELIN [Concomitant]
     Indication: ASTHMA
     Route: 055
     Dates: start: 20010101
  10. INTAL [Concomitant]
     Indication: ASTHMA
     Route: 055
     Dates: start: 20010101
  11. AZMACORT [Concomitant]
     Indication: ASTHMA
     Route: 055
     Dates: start: 20010101
  12. PREMARIN [Concomitant]
     Indication: MENOPAUSE
     Route: 048
     Dates: start: 20010101
  13. PROVERA [Concomitant]
     Indication: MENOPAUSE
     Route: 048
     Dates: start: 20010101
  14. PROZAC [Concomitant]
     Indication: DEPRESSION
     Route: 048
     Dates: start: 20020101
  15. AMBIEN [Concomitant]
     Indication: INSOMNIA
     Route: 048
     Dates: start: 20020101
  16. NYSTATIN [Concomitant]
     Dosage: DOSAGE AND FREQUENCY REPORTED AS AS REQUIRED.
     Route: 048
     Dates: start: 19710101
  17. TERCONAZOLE [Concomitant]
     Dosage: DOSE AND FREQUENCY REPORTED AS AS REQUIRED.
     Route: 048
     Dates: start: 19710101
  18. ALLERGY INJECTIONS [Concomitant]
     Route: 058
  19. ANAMANTLE HC [Concomitant]
     Dosage: DRUG REPORTED AS ANAMANTAL.
     Route: 054
     Dates: start: 20060822, end: 20060823
  20. XANAX [Concomitant]
     Indication: POST-TRAUMATIC STRESS DISORDER
     Route: 048
     Dates: start: 20040101
  21. ASPIRIN [Concomitant]
     Route: 048
     Dates: start: 19960101
  22. MOTRIN [Concomitant]
     Indication: BACK PAIN
     Route: 048
     Dates: start: 19840101
  23. ROBAXIN [Concomitant]
     Indication: BACK PAIN
     Route: 048
     Dates: start: 19710101
  24. TALACEN [Concomitant]
     Indication: BACK PAIN
     Route: 048
     Dates: start: 19950101
  25. ASCORBIC ACID [Concomitant]
     Indication: VITAMIN SUPPLEMENTATION
     Route: 048
     Dates: start: 19720101
  26. MAGNESIUM OXIDE [Concomitant]
     Indication: VITAMIN SUPPLEMENTATION
     Dosage: REPORTED AS MAGOXIDE.
     Route: 048
     Dates: start: 19880101
  27. VITAMIN E [Concomitant]
     Indication: VITAMIN SUPPLEMENTATION
     Route: 048
     Dates: start: 19950101
  28. MULTI-VITAMIN [Concomitant]
     Indication: VITAMIN SUPPLEMENTATION
     Route: 048
     Dates: start: 19710101
  29. IRON [Concomitant]
     Indication: VITAMIN SUPPLEMENTATION
     Route: 048
     Dates: start: 19860101
  30. CALCIUM [Concomitant]
     Indication: VITAMIN SUPPLEMENTATION
     Route: 048
     Dates: start: 19990101
  31. FISH OIL [Concomitant]
     Dosage: DRUG REPORTED AS PISH OIL.
  32. KYO-DOPHILUS [Concomitant]

REACTIONS (1)
  - DIFFUSE ALVEOLAR DAMAGE [None]
